FAERS Safety Report 23182993 (Version 1)
Quarter: 2023Q4

REPORT INFORMATION
  Report Type: Spontaneous
  Country: US (occurrence: US)
  Receive Date: 20231114
  Receipt Date: 20231114
  Transmission Date: 20240110
  Serious: No
  Sender: FDA-Public Use
  Company Number: US-SA-SAC20231106000474

PATIENT
  Sex: Female
  Weight: 91.5 kg

DRUGS (5)
  1. DUPIXENT [Suspect]
     Active Substance: DUPILUMAB
     Indication: Dermatitis atopic
     Dosage: 200 MG, QOW
     Route: 058
  2. CEPHALEXIN [Concomitant]
     Active Substance: CEPHALEXIN
  3. MUPIROCIN [Concomitant]
     Active Substance: MUPIROCIN
  4. CERAVE ITCH RELIEF MOISTURIZING [Concomitant]
     Active Substance: PRAMOXINE HYDROCHLORIDE
     Dosage: UNK, QD
  5. HYDROCORTISONE [Concomitant]
     Active Substance: HYDROCORTISONE
     Dosage: UNK, QD

REACTIONS (2)
  - Feeling abnormal [Not Recovered/Not Resolved]
  - Dermatitis atopic [Not Recovered/Not Resolved]
